FAERS Safety Report 18728300 (Version 1)
Quarter: 2021Q1

REPORT INFORMATION
  Report Type: Spontaneous
  Country: US (occurrence: US)
  Receive Date: 20210111
  Receipt Date: 20210111
  Transmission Date: 20210419
  Serious: Yes (Hospitalization, Disabling, Other)
  Sender: FDA-Public Use
  Company Number: US-009507513-2101USA003721

PATIENT
  Age: 60 Year
  Sex: Female

DRUGS (3)
  1. FOSAMAX [Suspect]
     Active Substance: ALENDRONATE SODIUM
     Indication: PRODUCT USED FOR UNKNOWN INDICATION
     Dosage: ^AS PRESCRIBED AND IN A FORESEEABLE MANNER^
     Route: 048
     Dates: start: 200804, end: 201003
  2. FOSAMAX [Suspect]
     Active Substance: ALENDRONATE SODIUM
     Dosage: AS PRESCRIBED AND IN A FORESEEABLE MANNER
     Route: 048
     Dates: start: 201003, end: 201101
  3. FOSAMAX [Suspect]
     Active Substance: ALENDRONATE SODIUM
     Indication: PRODUCT USED FOR UNKNOWN INDICATION
     Dosage: ^AS PRESCRIBED AND IN A FORESEEABLE MANNER^
     Route: 048
     Dates: start: 200402, end: 200905

REACTIONS (5)
  - Low turnover osteopathy [Unknown]
  - Femur fracture [Unknown]
  - Incorrect product administration duration [Unknown]
  - Lower limb fracture [Unknown]
  - Bone disorder [Unknown]

NARRATIVE: CASE EVENT DATE: 20120828
